FAERS Safety Report 26204450 (Version 1)
Quarter: 2025Q4

REPORT INFORMATION
  Report Type: Spontaneous
  Country: JP (occurrence: JP)
  Receive Date: 20251226
  Receipt Date: 20251226
  Transmission Date: 20260117
  Serious: Yes (Death)
  Sender: AMGEN
  Company Number: JP-AMGEN-JPNSP2025244638

PATIENT

DRUGS (1)
  1. IMDELLTRA [Suspect]
     Active Substance: TARLATAMAB-DLLE
     Indication: Product used for unknown indication
     Dosage: UNK, DRIP INFUSION
     Route: 040

REACTIONS (3)
  - Small cell lung cancer [Fatal]
  - Taste disorder [Not Recovered/Not Resolved]
  - Decreased appetite [Unknown]
